FAERS Safety Report 18687386 (Version 1)
Quarter: 2020Q4

REPORT INFORMATION
  Report Type: Spontaneous
  Country: US (occurrence: US)
  Receive Date: 20201231
  Receipt Date: 20201231
  Transmission Date: 20210114
  Serious: Yes (Other)
  Sender: FDA-Public Use
  Company Number: US-TEVA-2020-US-1864667

PATIENT
  Age: 60 Year
  Sex: Male

DRUGS (2)
  1. AUSTEDO [Suspect]
     Active Substance: DEUTETRABENAZINE
     Dosage: 9 MILLIGRAM DAILY; ONCE DAILY IN THE MORNING FOR 7 DAYS
     Route: 048
     Dates: start: 20201222, end: 20201228
  2. AUSTEDO [Suspect]
     Active Substance: DEUTETRABENAZINE
     Indication: TARDIVE DYSKINESIA
     Dosage: 18 MILLIGRAM DAILY; 9MG TWICE DAILY
     Route: 048
     Dates: start: 202008, end: 20201221

REACTIONS (9)
  - Gait disturbance [Unknown]
  - Loss of personal independence in daily activities [Unknown]
  - Abnormal behaviour [Unknown]
  - Dyskinesia [Unknown]
  - Brain injury [Unknown]
  - Restlessness [Unknown]
  - Agitation [Unknown]
  - Soliloquy [Unknown]
  - Weight decreased [Unknown]
